FAERS Safety Report 13709164 (Version 2)
Quarter: 2017Q4

REPORT INFORMATION
  Report Type: Report from Study
  Country: CA (occurrence: CA)
  Receive Date: 20170702
  Receipt Date: 20171107
  Transmission Date: 20180320
  Serious: Yes (Death, Other)
  Sender: FDA-Public Use
  Company Number: CA-MYLANLABS-2017M1040346

PATIENT

DRUGS (1)
  1. CLOZAPINE. [Suspect]
     Active Substance: CLOZAPINE
     Indication: PRODUCT USED FOR UNKNOWN INDICATION
     Dosage: UNK
     Dates: start: 199709

REACTIONS (4)
  - Death [Fatal]
  - Metastatic malignant melanoma [Unknown]
  - Metastases to liver [Unknown]
  - Palliative care [Unknown]

NARRATIVE: CASE EVENT DATE: 20170628
